FAERS Safety Report 5523003-2 (Version None)
Quarter: 2007Q4

REPORT INFORMATION
  Report Type: 
  Country: None (occurrence: None)
  Receive Date: 20071116
  Receipt Date: 20071107
  Transmission Date: 20080405
  Serious: Yes (Hospitalization)
  Sender: FDA-Public Use
  Company Number: 194852

PATIENT
  Age: 49 Year
  Sex: Female

DRUGS (5)
  1. AVONEX [Suspect]
     Indication: MULTIPLE SCLEROSIS
     Dosage: 30 UG; QW; IM
     Dates: start: 20030501, end: 20030101
  2. AVONEX [Suspect]
     Indication: MULTIPLE SCLEROSIS
     Dosage: 30 UG; QW; IM
     Route: 030
     Dates: start: 20030101, end: 20040317
  3. CLONAZEPAM [Concomitant]
  4. HYDROXYZINE [Concomitant]
  5. TYLENOL [Concomitant]

REACTIONS (6)
  - DEPRESSION [None]
  - HOMICIDAL IDEATION [None]
  - INFLUENZA LIKE ILLNESS [None]
  - PYREXIA [None]
  - SUICIDAL BEHAVIOUR [None]
  - SUICIDAL IDEATION [None]
